FAERS Safety Report 5097800-4 (Version None)
Quarter: 2006Q3

REPORT INFORMATION
  Report Type: 
  Country: None (occurrence: None)
  Receive Date: 20060731
  Receipt Date: 20060222
  Transmission Date: 20061208
  Serious: Yes (Other)
  Sender: FDA-Public Use
  Company Number: 221490

PATIENT
  Age: 58 Year
  Sex: Female

DRUGS (13)
  1. HERCEPTIN [Suspect]
     Indication: BREAST CANCER
     Dosage: SEE IMAGE
     Dates: start: 20050620, end: 20051215
  2. HERCEPTIN [Suspect]
     Indication: BREAST CANCER
     Dosage: SEE IMAGE
     Dates: start: 20051223
  3. AROMASIN [Concomitant]
  4. AVAPRO [Concomitant]
  5. METFORMIN HCL [Concomitant]
  6. OMEPRAZOLE [Concomitant]
  7. CELEBREX [Concomitant]
  8. PAXIL [Concomitant]
  9. UNITHROID (LEVOTHYROXINE SODIUM) [Concomitant]
  10. FLOVENT [Concomitant]
  11. SEREVENT [Concomitant]
  12. FLONASE [Concomitant]
  13. ALBUTEROL (ALBUTEROL/ALBUTEROL SULFATE) [Concomitant]

REACTIONS (1)
  - ASTHMA [None]
